FAERS Safety Report 25483431 (Version 1)
Quarter: 2025Q2

REPORT INFORMATION
  Report Type: Spontaneous
  Country: CH (occurrence: CH)
  Receive Date: 20250626
  Receipt Date: 20250626
  Transmission Date: 20250717
  Serious: Yes (Hospitalization)
  Sender: MYLAN
  Company Number: CH-MYLANLABS-2025M1052925

PATIENT
  Age: 20 Year
  Sex: Male

DRUGS (15)
  1. CLOZAPINE [Suspect]
     Active Substance: CLOZAPINE
     Indication: Psychotic disorder
     Dosage: 350 MILLIGRAM, QD
  2. RISPERIDONE [Suspect]
     Active Substance: RISPERIDONE
     Indication: Autism spectrum disorder
  3. RISPERIDONE [Suspect]
     Active Substance: RISPERIDONE
     Indication: Behaviour disorder
  4. GUANFACINE [Suspect]
     Active Substance: GUANFACINE
     Indication: Autism spectrum disorder
  5. GUANFACINE [Suspect]
     Active Substance: GUANFACINE
     Indication: Behaviour disorder
  6. LORAZEPAM [Suspect]
     Active Substance: LORAZEPAM
     Indication: Autism spectrum disorder
  7. LORAZEPAM [Suspect]
     Active Substance: LORAZEPAM
     Indication: Behaviour disorder
  8. LEVOMEPROMAZINE [Suspect]
     Active Substance: LEVOMEPROMAZINE
     Indication: Autism spectrum disorder
  9. LEVOMEPROMAZINE [Suspect]
     Active Substance: LEVOMEPROMAZINE
     Indication: Behaviour disorder
  10. DIPHENHYDRAMINE [Suspect]
     Active Substance: DIPHENHYDRAMINE
     Indication: Autism spectrum disorder
  11. DIPHENHYDRAMINE [Suspect]
     Active Substance: DIPHENHYDRAMINE
     Indication: Behaviour disorder
  12. BIPERIDEN [Suspect]
     Active Substance: BIPERIDEN
     Indication: Autism spectrum disorder
  13. BIPERIDEN [Suspect]
     Active Substance: BIPERIDEN
     Indication: Behaviour disorder
  14. DOXYLAMINE [Suspect]
     Active Substance: DOXYLAMINE
     Indication: Autism spectrum disorder
  15. DOXYLAMINE [Suspect]
     Active Substance: DOXYLAMINE
     Indication: Behaviour disorder

REACTIONS (2)
  - Urinary retention [Recovered/Resolved]
  - Off label use [Unknown]
